FAERS Safety Report 25488370 (Version 1)
Quarter: 2025Q2

REPORT INFORMATION
  Report Type: Spontaneous
  Country: DE (occurrence: DE)
  Receive Date: 20250627
  Receipt Date: 20250627
  Transmission Date: 20250716
  Serious: Yes (Death, Other)
  Sender: ADC THERAPEUTICS
  Company Number: DE-BIOVITRUM-2025-DE-008933

PATIENT
  Sex: Female

DRUGS (2)
  1. ZYNLONTA [Suspect]
     Active Substance: LONCASTUXIMAB TESIRINE-LPYL
     Indication: Product used for unknown indication
     Route: 042
  2. ZYNLONTA [Suspect]
     Active Substance: LONCASTUXIMAB TESIRINE-LPYL
     Route: 042
     Dates: start: 2024, end: 2024

REACTIONS (2)
  - Death [Fatal]
  - Condition aggravated [Unknown]
